FAERS Safety Report 5808983-X (Version None)
Quarter: 2008Q3

REPORT INFORMATION
  Report Type: 
  Country: None (occurrence: None)
  Receive Date: 20080710
  Receipt Date: 20080710
  Transmission Date: 20090109
  Serious: Yes (Hospitalization)
  Sender: FDA-Public Use
  Company Number: None

PATIENT
  Sex: Female
  Weight: 65.7716 kg

DRUGS (1)
  1. AMBIEN [Suspect]
     Indication: INSOMNIA
     Dosage: ONE AS NEEDED PO
     Route: 048
     Dates: start: 20060601, end: 20080704

REACTIONS (4)
  - AMNESIA [None]
  - BACK INJURY [None]
  - FALL [None]
  - JOINT INJURY [None]
